FAERS Safety Report 15324077 (Version 1)
Quarter: 2018Q3

REPORT INFORMATION
  Report Type: Spontaneous
  Country: US (occurrence: US)
  Receive Date: 20180828
  Receipt Date: 20180828
  Transmission Date: 20181010
  Serious: Yes (Other)
  Sender: FDA-Public Use
  Company Number: US-BEH-2018094246

PATIENT
  Age: 71 Year
  Sex: Female

DRUGS (15)
  1. HYDROMORPHONE [Concomitant]
     Active Substance: HYDROMORPHONE
  2. HAEGARDA [Suspect]
     Active Substance: HUMAN C1-ESTERASE INHIBITOR
     Indication: MYELODYSPLASTIC SYNDROME
     Dosage: 7000 IU, BIW, EVERY 3?4 DAYS
     Route: 058
     Dates: start: 201807, end: 201808
  3. HAEGARDA [Suspect]
     Active Substance: HUMAN C1-ESTERASE INHIBITOR
     Dosage: UNK
     Route: 058
  4. GABAPENTIN. [Concomitant]
     Active Substance: GABAPENTIN
  5. GLIPIZIDE. [Concomitant]
     Active Substance: GLIPIZIDE
  6. VALSARTAN. [Concomitant]
     Active Substance: VALSARTAN
  7. DANAZOL. [Concomitant]
     Active Substance: DANAZOL
  8. NASONEX [Concomitant]
     Active Substance: MOMETASONE FUROATE
     Route: 045
  9. XANAX [Concomitant]
     Active Substance: ALPRAZOLAM
  10. LEVOTHYROXINE SODIUM. [Concomitant]
     Active Substance: LEVOTHYROXINE SODIUM
  11. METOCLOPRAMIDE. [Concomitant]
     Active Substance: METOCLOPRAMIDE
  12. WARFARIN SODIUM. [Concomitant]
     Active Substance: WARFARIN SODIUM
  13. OMEPRAZOLE. [Concomitant]
     Active Substance: OMEPRAZOLE
  14. ZYRTEC [Concomitant]
     Active Substance: CETIRIZINE HYDROCHLORIDE
  15. REVLIMID [Concomitant]
     Active Substance: LENALIDOMIDE

REACTIONS (1)
  - Peripheral swelling [Recovered/Resolved]

NARRATIVE: CASE EVENT DATE: 201807
